FAERS Safety Report 7119168-1 (Version None)
Quarter: 2010Q4

REPORT INFORMATION
  Report Type: 
  Country: None (occurrence: None)
  Receive Date: 20101123
  Receipt Date: 20100707
  Transmission Date: 20110411
  Serious: No
  Sender: FDA-Public Use
  Company Number: US-MYLANLABS-2010S1012238

PATIENT

DRUGS (2)
  1. LORAZEPAM [Suspect]
  2. LORAZEPAM [Suspect]

REACTIONS (2)
  - DIZZINESS [None]
  - PALPITATIONS [None]
